FAERS Safety Report 19612121 (Version 1)
Quarter: 2021Q3

REPORT INFORMATION
  Report Type: Spontaneous
  Country: GB (occurrence: GB)
  Receive Date: 20210727
  Receipt Date: 20210727
  Transmission Date: 20211014
  Serious: Yes (Hospitalization)
  Sender: FDA-Public Use
  Company Number: GB-ORGANON-O2107GBR001863

PATIENT
  Age: 32 Year
  Sex: Female

DRUGS (5)
  1. FEXOFENADINE [Concomitant]
     Active Substance: FEXOFENADINE HYDROCHLORIDE
     Indication: ILL-DEFINED DISORDER
     Dosage: UNK
  2. VENTOLIN [Concomitant]
     Active Substance: ALBUTEROL SULFATE
     Indication: ILL-DEFINED DISORDER
     Dosage: UNK
  3. NEXPLANON [Suspect]
     Active Substance: ETONOGESTREL
     Indication: ILL-DEFINED DISORDER
     Dosage: UNK
     Route: 054
     Dates: start: 20210526
  4. CITALOPRAM [Concomitant]
     Active Substance: CITALOPRAM HYDROBROMIDE
     Indication: ILL-DEFINED DISORDER
     Dosage: UNK
  5. ELOCON [Suspect]
     Active Substance: MOMETASONE FUROATE
     Indication: ILL-DEFINED DISORDER
     Dosage: UNK
     Route: 061
     Dates: start: 20210720, end: 20210720

REACTIONS (2)
  - Hypersensitivity [Recovered/Resolved]
  - Hypersensitivity [Recovering/Resolving]

NARRATIVE: CASE EVENT DATE: 20210526
